FAERS Safety Report 23865599 (Version 1)
Quarter: 2024Q2

REPORT INFORMATION
  Report Type: Report from Study
  Country: GB (occurrence: GB)
  Receive Date: 20240517
  Receipt Date: 20240517
  Transmission Date: 20240716
  Serious: Yes (Other)
  Sender: FDA-Public Use
  Company Number: GB-SANDOZ-SDZ2024GB048943

PATIENT
  Sex: Female

DRUGS (1)
  1. HYRIMOZ [Suspect]
     Active Substance: ADALIMUMAB-ADAZ
     Indication: Rheumatoid arthritis
     Dosage: 40 MG EOW (40MG/0.4ML SOLUTION FOR INJECTION PRE-FILLED PENS (SANDOZ LTD) 2 PRE-FILLED DISPOSABLE IN
     Route: 058

REACTIONS (2)
  - Tooth disorder [Unknown]
  - Product dose omission issue [Unknown]
